FAERS Safety Report 5145096-7 (Version None)
Quarter: 2006Q4

REPORT INFORMATION
  Report Type: 
  Country: None (occurrence: None)
  Receive Date: 20061107
  Receipt Date: 20061023
  Transmission Date: 20070319
  Serious: Yes (Life-Threatening, Hospitalization)
  Sender: FDA-Public Use
  Company Number: GB-JNJFOC-20061101423

PATIENT
  Age: 36 Year
  Sex: Female

DRUGS (1)
  1. DESOGEN [Suspect]
     Indication: CONTRACEPTION
     Route: 048

REACTIONS (3)
  - ANAPHYLACTIC REACTION [None]
  - PULMONARY EMBOLISM [None]
  - RESPIRATORY ARREST [None]
